FAERS Safety Report 19360157 (Version 1)
Quarter: 2021Q2

REPORT INFORMATION
  Report Type: Spontaneous
  Country: KR (occurrence: KR)
  Receive Date: 20210601
  Receipt Date: 20210601
  Transmission Date: 20210717
  Serious: Yes (Hospitalization)
  Sender: FDA-Public Use
  Company Number: KR-HALOZYME THERAPEUTICS, INC.-2021-KR-HYL-01106

PATIENT

DRUGS (4)
  1. HYLENEX RECOMBINANT [Suspect]
     Active Substance: HYALURONIDASE (HUMAN RECOMBINANT)
     Dosage: 1 MILLILITER
  2. NORMAL SALINE [Suspect]
     Active Substance: SODIUM CHLORIDE
     Dosage: 1 MILLILITER
  3. PLACENTA [Suspect]
     Active Substance: SUS SCROFA PLACENTA
     Dosage: 2 MILLILITER
  4. LIDOCAINE. [Suspect]
     Active Substance: LIDOCAINE
     Dosage: 0.3 MILLILITER

REACTIONS (1)
  - Meningitis chemical [Recovered/Resolved]
